FAERS Safety Report 17976087 (Version 2)
Quarter: 2020Q3

REPORT INFORMATION
  Report Type: Spontaneous
  Country: BR (occurrence: BR)
  Receive Date: 20200703
  Receipt Date: 20200708
  Transmission Date: 20201103
  Serious: Yes (Other)
  Sender: FDA-Public Use
  Company Number: BR-PFIZER INC-2020254070

PATIENT
  Sex: Female

DRUGS (1)
  1. RAPAMUNE [Suspect]
     Active Substance: SIROLIMUS
     Indication: BONE MARROW TRANSPLANT REJECTION
     Dosage: UNK

REACTIONS (4)
  - Coma [Unknown]
  - Pneumonia [Unknown]
  - Off label use [Unknown]
  - Drug ineffective for unapproved indication [Unknown]
